FAERS Safety Report 25645692 (Version 1)
Quarter: 2025Q3

REPORT INFORMATION
  Report Type: Report from Study
  Country: GB (occurrence: GB)
  Receive Date: 20250805
  Receipt Date: 20250805
  Transmission Date: 20251021
  Serious: Yes (Hospitalization)
  Sender: UCB
  Company Number: GB-UCBSA-2025047484

PATIENT
  Sex: Female

DRUGS (1)
  1. BIMEKIZUMAB [Suspect]
     Active Substance: BIMEKIZUMAB
     Indication: Axial spondyloarthritis
     Dosage: 160 MILLIGRAM, EV 4 WEEKS
     Route: 058

REACTIONS (6)
  - Asthma [Unknown]
  - Pruritus [Unknown]
  - Depressed mood [Unknown]
  - Musculoskeletal discomfort [Unknown]
  - Sinus disorder [Unknown]
  - Sinus operation [Unknown]
